FAERS Safety Report 7097019-1 (Version None)
Quarter: 2010Q4

REPORT INFORMATION
  Report Type: 
  Country: None (occurrence: None)
  Receive Date: 20101111
  Receipt Date: 20100419
  Transmission Date: 20110411
  Serious: No
  Sender: FDA-Public Use
  Company Number: US-KINGPHARMUSA00001-K201000467

PATIENT
  Age: 48 Year
  Sex: Male

DRUGS (4)
  1. EMBEDA [Suspect]
     Indication: PAIN
     Dosage: 50 MG, BID
     Route: 048
     Dates: start: 20100101, end: 20100101
  2. EMBEDA [Suspect]
     Dosage: UNK
     Dates: start: 20100101
  3. TESTOSTERONE [Concomitant]
     Dosage: UNK
  4. ADDERALL 10 [Concomitant]
     Indication: ATTENTION DEFICIT/HYPERACTIVITY DISORDER
     Dosage: UNK

REACTIONS (1)
  - RASH PRURITIC [None]
